FAERS Safety Report 7823925-3 (Version None)
Quarter: 2011Q4

REPORT INFORMATION
  Report Type: 
  Country: None (occurrence: None)
  Receive Date: 20111018
  Receipt Date: 20111018
  Transmission Date: 20120403
  Serious: Yes (Other)
  Sender: FDA-Public Use
  Company Number: None

PATIENT
  Sex: Female

DRUGS (1)
  1. COPAXONE [Suspect]
     Indication: MULTIPLE SCLEROSIS
     Dosage: 20MG DAILY SQ
     Route: 058
     Dates: start: 20080101, end: 20110101

REACTIONS (4)
  - INJECTION SITE PAIN [None]
  - HYPOAESTHESIA [None]
  - SENSATION OF HEAVINESS [None]
  - MONOPARESIS [None]
